FAERS Safety Report 20134694 (Version 2)
Quarter: 2021Q4

REPORT INFORMATION
  Report Type: Report from Study
  Country: EE (occurrence: EE)
  Receive Date: 20211201
  Receipt Date: 20211209
  Transmission Date: 20220303
  Serious: Yes (Hospitalization, Other)
  Sender: FDA-Public Use
  Company Number: EE-ABBVIE-21K-221-4180338-00

PATIENT
  Age: 76 Year
  Sex: Male

DRUGS (8)
  1. CARBIDOPA\LEVODOPA [Suspect]
     Active Substance: CARBIDOPA\LEVODOPA
     Indication: Parkinson^s disease
     Dosage: MORN. 10ML CONT.5,0 ML/H EXTRA 4,5 ML
     Route: 050
     Dates: start: 20201229, end: 20211009
  2. CARBIDOPA\LEVODOPA [Suspect]
     Active Substance: CARBIDOPA\LEVODOPA
     Dosage: MORN. 9 ML CONT. 2,5  ML/H EXTRA 2 ML
     Route: 050
     Dates: start: 20211025
  3. RIVOTRIL [Concomitant]
     Active Substance: CLONAZEPAM
     Indication: Parkinson^s disease
     Route: 048
     Dates: start: 20210429
  4. AMOXICILLIN\CLAVULANIC ACID [Concomitant]
     Active Substance: AMOXICILLIN\CLAVULANIC ACID
     Indication: Pneumonia
     Route: 048
     Dates: start: 20211022, end: 20211026
  5. CEFUROXIME [Concomitant]
     Active Substance: CEFUROXIME
     Indication: Product used for unknown indication
     Route: 048
     Dates: start: 20211018, end: 20211021
  6. DEXAMETHASONE [Concomitant]
     Active Substance: DEXAMETHASONE
     Indication: Pneumonia
     Route: 042
     Dates: start: 20211009, end: 20211009
  7. VACCINA   COMIRNATY [Concomitant]
     Indication: COVID-19 prophylaxis
     Dosage: VACCINATED WITH 2 DOSES COMIRNATY
  8. VACCINA   COMIRNATY [Concomitant]
     Dosage: SECOND DOSE
     Dates: start: 20210506

REACTIONS (1)
  - COVID-19 pneumonia [Recovered/Resolved]

NARRATIVE: CASE EVENT DATE: 20211009
